FAERS Safety Report 8017261-2 (Version None)
Quarter: 2012Q1

REPORT INFORMATION
  Report Type: 
  Country: None (occurrence: None)
  Receive Date: 20120102
  Receipt Date: 20111223
  Transmission Date: 20120608
  Serious: Yes (Other)
  Sender: FDA-Public Use
  Company Number: PHHY2011US112403

PATIENT
  Age: 54 Year
  Sex: Male

DRUGS (10)
  1. DEXAMETHASONE [Concomitant]
  2. PREGABALIN [Concomitant]
     Dosage: 300 MG, BID
  3. CYCLOPHOSPHAMIDE [Concomitant]
  4. THALIDOMIDE [Suspect]
     Dosage: 50 MG, DAILY
     Route: 048
  5. PAMIDRONATE DISODIUM [Suspect]
     Indication: MULTIPLE MYELOMA
  6. LENALIDOMIDE [Concomitant]
  7. DOXEPIN [Concomitant]
     Dosage: 25 MG, QD
  8. THALIDOMIDE [Suspect]
     Indication: MULTIPLE MYELOMA
     Dosage: UNK
  9. BORTEZOMIB [Concomitant]
  10. THALIDOMIDE [Suspect]
     Dosage: 100 MG, DAILY

REACTIONS (8)
  - ASTHENIA [None]
  - PERIPHERAL SENSORY NEUROPATHY [None]
  - MYELOMA RECURRENCE [None]
  - PARAESTHESIA [None]
  - HYPOAESTHESIA [None]
  - SENSORY LOSS [None]
  - BURNING SENSATION [None]
  - PERIPHERAL COLDNESS [None]
